FAERS Safety Report 14258963 (Version 6)
Quarter: 2019Q1

REPORT INFORMATION
  Report Type: Report from Study
  Country: BR (occurrence: BR)
  Receive Date: 20171207
  Receipt Date: 20190125
  Transmission Date: 20190417
  Serious: Yes (Other)
  Sender: FDA-Public Use
  Company Number: PHHY2017BR169619

PATIENT
  Sex: Female
  Weight: 72 kg

DRUGS (5)
  1. VOTRIENT [Suspect]
     Active Substance: PAZOPANIB HYDROCHLORIDE
     Dosage: 400 MG, QD
     Route: 048
     Dates: start: 201709
  2. VOTRIENT [Suspect]
     Active Substance: PAZOPANIB HYDROCHLORIDE
     Dosage: 800 MG, QD (2 TABLETS OF 200 MG IN THE MORNING AND THE OTHER 2 TABLETS OF 200 MG IN THE EVENING )
     Route: 048
     Dates: start: 201708
  3. LOSARTAN. [Concomitant]
     Active Substance: LOSARTAN
     Indication: HYPERTENSION
     Dosage: 2 DF, QD
     Route: 048
  4. PURAN [Concomitant]
     Active Substance: LEVOTHYROXINE SODIUM
     Indication: THYROID DISORDER
     Dosage: 1 DF, QD
     Route: 048
  5. VOTRIENT [Suspect]
     Active Substance: PAZOPANIB HYDROCHLORIDE
     Indication: RENAL CELL CARCINOMA
     Dosage: 400 MG, BID (2 TABLET IN THE MORNING AND 2 IN THE EVENING)
     Route: 048
     Dates: start: 2017

REACTIONS (31)
  - Back pain [Recovering/Resolving]
  - Insomnia [Recovered/Resolved]
  - Asthenia [Unknown]
  - Flatulence [Unknown]
  - Diarrhoea [Recovered/Resolved]
  - Vomiting [Recovered/Resolved]
  - Oedema peripheral [Not Recovered/Not Resolved]
  - Hair colour changes [Unknown]
  - Fatigue [Unknown]
  - Weight decreased [Unknown]
  - Inappropriate schedule of product administration [Recovered/Resolved]
  - Anxiety [Recovered/Resolved]
  - Pain [Unknown]
  - Gait disturbance [Recovered/Resolved]
  - Abdominal pain upper [Unknown]
  - Headache [Unknown]
  - Nausea [Recovered/Resolved]
  - Pain in extremity [Recovering/Resolving]
  - Decreased appetite [Recovered/Resolved]
  - Paraesthesia [Unknown]
  - Dysstasia [Unknown]
  - Burning sensation [Unknown]
  - Malaise [Recovering/Resolving]
  - Dysgeusia [Not Recovered/Not Resolved]
  - Jaundice [Recovered/Resolved]
  - Varicose vein [Not Recovered/Not Resolved]
  - Vena cava injury [Recovered/Resolved]
  - Musculoskeletal pain [Recovering/Resolving]
  - Feeling abnormal [Unknown]
  - Restlessness [Unknown]
  - Peripheral swelling [Unknown]

NARRATIVE: CASE EVENT DATE: 2017
